FAERS Safety Report 5756720-X (Version None)
Quarter: 2008Q2

REPORT INFORMATION
  Report Type: 
  Country: None (occurrence: None)
  Receive Date: 20080603
  Receipt Date: 20080523
  Transmission Date: 20081010
  Serious: Yes (Hospitalization)
  Sender: FDA-Public Use
  Company Number: FR-TEVA-172005ISR

PATIENT
  Sex: Female

DRUGS (7)
  1. VINCRISTINE [Suspect]
     Dosage: UNIT DOSE: 1 GR/ML
     Route: 042
     Dates: start: 20080318, end: 20080320
  2. METHOTREXATE [Suspect]
     Route: 037
     Dates: start: 20080318, end: 20080325
  3. CYCLOPHOSPHAMIDE [Suspect]
     Route: 042
     Dates: start: 20080318, end: 20080318
  4. CYTARABINE [Suspect]
     Route: 037
     Dates: start: 20080318, end: 20080325
  5. DAUNORUBICIN HCL [Suspect]
     Route: 042
     Dates: start: 20080318, end: 20080320
  6. ASPARAGINASE [Suspect]
     Route: 037
     Dates: start: 20080325, end: 20080325
  7. METHYLPREDNISOLONE ACETATE [Suspect]
     Route: 037
     Dates: start: 20080318, end: 20080101

REACTIONS (4)
  - COORDINATION ABNORMAL [None]
  - DYSKINESIA [None]
  - FALL [None]
  - REVERSIBLE POSTERIOR LEUKOENCEPHALOPATHY SYNDROME [None]
